FAERS Safety Report 13230203 (Version 1)
Quarter: 2017Q1

REPORT INFORMATION
  Report Type: Spontaneous
  Country: HR (occurrence: HR)
  Receive Date: 20170214
  Receipt Date: 20170214
  Transmission Date: 20170428
  Serious: Yes (Other)
  Sender: FDA-Public Use
  Company Number: HR-TEVA-738516ACC

PATIENT
  Age: 34 Year
  Sex: Female

DRUGS (4)
  1. LADIOMIL [Suspect]
     Active Substance: MAPROTILINE HYDROCHLORIDE
     Route: 048
  2. PRAXITEN [Suspect]
     Active Substance: OXAZEPAM
     Route: 048
  3. ORMIDOL [Suspect]
     Active Substance: ATENOLOL
     Route: 048
  4. MISAR [Suspect]
     Active Substance: ALPRAZOLAM
     Route: 048

REACTIONS (3)
  - Suicide attempt [Unknown]
  - Intentional overdose [Unknown]
  - No adverse event [Unknown]

NARRATIVE: CASE EVENT DATE: 20161221
